FAERS Safety Report 21145290 (Version 1)
Quarter: 2022Q3

REPORT INFORMATION
  Report Type: Report from Study
  Country: BR (occurrence: BR)
  Receive Date: 20220729
  Receipt Date: 20220729
  Transmission Date: 20221027
  Serious: Yes (Hospitalization, Other)
  Sender: FDA-Public Use
  Company Number: BR-JNJFOC-20220745505

PATIENT
  Sex: Female

DRUGS (1)
  1. INFLIXIMAB [Suspect]
     Active Substance: INFLIXIMAB
     Indication: Rheumatoid arthritis
     Dosage: 3 VIALS EVERY 8 WEEKS
     Route: 041
     Dates: start: 20170402

REACTIONS (3)
  - Platelet count decreased [Unknown]
  - Asthenia [Unknown]
  - Weight decreased [Unknown]
